FAERS Safety Report 8150350 (Version 2)
Quarter: 2013Q2

REPORT INFORMATION
  Report Type: Spontaneous
  Country: US (occurrence: US)
  Receive Date: 20110922
  Receipt Date: 20130419
  Transmission Date: 20140414
  Serious: Yes (Other)
  Sender: FDA-Public Use
  Company Number: US-ASTRAZENECA-2011SE19720

PATIENT
  Age: 54 Year
  Sex: Female

DRUGS (4)
  1. SEROQUEL [Suspect]
     Indication: SLEEP DISORDER
     Route: 048
  2. SEROQUEL [Suspect]
     Indication: DEPRESSION
     Route: 048
  3. SEROQUEL [Suspect]
     Indication: SLEEP DISORDER
     Route: 048
  4. SEROQUEL [Suspect]
     Indication: DEPRESSION
     Route: 048

REACTIONS (10)
  - Breast cancer female [Unknown]
  - Ovarian mass [Unknown]
  - Cervix enlargement [Unknown]
  - Hunger [Unknown]
  - Insomnia [Unknown]
  - Depression [Unknown]
  - Nausea [Unknown]
  - Malaise [Unknown]
  - Weight increased [Unknown]
  - Drug dose omission [Unknown]
